FAERS Safety Report 13042816 (Version 1)
Quarter: 2016Q4

REPORT INFORMATION
  Report Type: Spontaneous
  Country: US (occurrence: US)
  Receive Date: 20161219
  Receipt Date: 20161219
  Transmission Date: 20170207
  Serious: Yes (Hospitalization, Other)
  Sender: FDA-Public Use
  Company Number: US-BAUSCH-BL-2016-031972

PATIENT
  Age: 63 Year
  Sex: Male

DRUGS (8)
  1. FLUOROURACIL. [Suspect]
     Active Substance: FLUOROURACIL
     Indication: COLON CANCER STAGE III
     Route: 040
  2. FLUOROURACIL. [Suspect]
     Active Substance: FLUOROURACIL
     Route: 040
  3. FLUOROURACIL. [Suspect]
     Active Substance: FLUOROURACIL
     Indication: COLON CANCER
     Dosage: ADMINISTERED AS A 46 HOUR INFUSION.
     Route: 065
  4. OXALIPLATIN. [Concomitant]
     Active Substance: OXALIPLATIN
     Indication: COLON CANCER
     Dosage: 2 HOUR INFUSION.
  5. OXALIPLATIN. [Concomitant]
     Active Substance: OXALIPLATIN
     Indication: COLON CANCER STAGE III
     Dosage: 2 HOUR INFUSION.
  6. FOLINIC ACID [Concomitant]
     Active Substance: LEUCOVORIN
     Indication: COLON CANCER
  7. FOLINIC ACID [Concomitant]
     Active Substance: LEUCOVORIN
     Indication: COLON CANCER STAGE III
  8. FLUOROURACIL. [Suspect]
     Active Substance: FLUOROURACIL
     Dosage: ADMINISTERED AS A 46 HOUR INFUSION.
     Route: 065

REACTIONS (1)
  - Encephalopathy [Recovered/Resolved]
